FAERS Safety Report 16109466 (Version 1)
Quarter: 2019Q1

REPORT INFORMATION
  Report Type: Spontaneous
  Country: US (occurrence: US)
  Receive Date: 20190324
  Receipt Date: 20190324
  Transmission Date: 20190418
  Serious: No
  Sender: FDA-Public Use
  Company Number: US-009507513-1903USA005890

PATIENT
  Sex: Female

DRUGS (1)
  1. NEXPLANON [Suspect]
     Active Substance: ETONOGESTREL
     Dosage: 1 ROD/3 YEAR IMPLANT
     Route: 059

REACTIONS (3)
  - Product quality issue [Unknown]
  - Complication of device insertion [Unknown]
  - No adverse event [Unknown]

NARRATIVE: CASE EVENT DATE: 20190308
